FAERS Safety Report 9434042 (Version 2)
Quarter: 2013Q3

REPORT INFORMATION
  Report Type: Spontaneous
  Country: US (occurrence: US)
  Receive Date: 20130801
  Receipt Date: 20130828
  Transmission Date: 20140515
  Serious: No
  Sender: FDA-Public Use
  Company Number: US-BIOGENIDEC-2013BI069972

PATIENT
  Age: 29 Year
  Sex: Male

DRUGS (5)
  1. AVONEX [Suspect]
     Indication: MULTIPLE SCLEROSIS
     Route: 030
     Dates: start: 20130708, end: 201307
  2. AVONEX [Suspect]
     Indication: MULTIPLE SCLEROSIS
     Route: 030
     Dates: start: 20130722
  3. TRAZODONE [Concomitant]
     Indication: SLEEP DISORDER
  4. LUNESTA [Concomitant]
     Indication: SLEEP DISORDER
  5. PROPRANOLOL [Concomitant]
     Indication: TREMOR

REACTIONS (3)
  - Hallucination [Recovered/Resolved]
  - Influenza like illness [Recovered/Resolved]
  - Multiple sclerosis relapse [Not Recovered/Not Resolved]
